FAERS Safety Report 9312454 (Version 1)
Quarter: 2013Q2

REPORT INFORMATION
  Report Type: Spontaneous
  Country: US (occurrence: None)
  Receive Date: 20130507
  Receipt Date: 20130507
  Transmission Date: 20140414
  Serious: Yes (Life-Threatening, Other)
  Sender: FDA-Public Use
  Company Number: 201305804

PATIENT
  Age: 25 Year
  Sex: Female

DRUGS (1)
  1. BERINERT (CI ESTERASE INHIBITOR, HUMAN) [Suspect]
     Indication: HEREDITARY ANGIOEDEMA
     Dosage: ONCE EVERY THREE DAYS
     Route: 042
     Dates: start: 20130428

REACTIONS (13)
  - Off label use [None]
  - Pyrexia [None]
  - Pharyngeal disorder [None]
  - Malaise [None]
  - Dysphagia [None]
  - Fatigue [None]
  - Pain [None]
  - Viral infection [None]
  - Self-medication [None]
  - Hereditary angioedema [None]
  - Condition aggravated [None]
  - Product contamination [None]
  - Suspected transmission of an infectious agent via product [None]
